FAERS Safety Report 8856400 (Version 1)
Quarter: 2013Q1

REPORT INFORMATION
  Report Type: Spontaneous
  Country: FI (occurrence: None)
  Receive Date: 20121018
  Receipt Date: 20130204
  Transmission Date: 20140127
  Serious: Yes (Hospitalization)
  Sender: FDA-Public Use
  Company Number: 1436920

PATIENT
  Age: 52 Year
  Sex: Female
  Weight: 61 kg

DRUGS (5)
  1. OXALIPLATIN [Suspect]
     Indication: RECTAL CANCER
     Dosage: UNKNOWN, 2 WEEK, INTRAVENOUS (NOT OTHERWISE SPECIFIED)
     Route: 042
     Dates: start: 20120925, end: 20120925
  2. VECTIBIX [Concomitant]
  3. KYTRIL [Concomitant]
  4. ANTREX [Concomitant]
  5. 5-FU [Concomitant]

REACTIONS (2)
  - Suffocation feeling [None]
  - Dyspnoea [None]
